FAERS Safety Report 23569616 (Version 3)
Quarter: 2025Q2

REPORT INFORMATION
  Report Type: Spontaneous
  Country: PT (occurrence: PT)
  Receive Date: 20240227
  Receipt Date: 20250628
  Transmission Date: 20250717
  Serious: Yes (Other)
  Sender: AUROBINDO
  Company Number: PT-FreseniusKabi-FK202402255

PATIENT
  Age: 59 Year
  Sex: Male

DRUGS (5)
  1. PEMETREXED [Suspect]
     Active Substance: PEMETREXED
     Indication: Chemotherapy
     Route: 065
  2. PEMETREXED [Suspect]
     Active Substance: PEMETREXED
     Indication: Non-small cell lung cancer
  3. CISPLATIN [Concomitant]
     Active Substance: CISPLATIN
     Indication: Chemotherapy
     Route: 065
  4. CISPLATIN [Concomitant]
     Active Substance: CISPLATIN
     Indication: Non-small cell lung cancer
  5. CRIZOTINIB [Concomitant]
     Active Substance: CRIZOTINIB
     Indication: Product used for unknown indication
     Dosage: 250 MILLIGRAM, TWO TIMES A DAY
     Route: 065

REACTIONS (1)
  - Renal impairment [Not Recovered/Not Resolved]
